FAERS Safety Report 7048965-6 (Version None)
Quarter: 2010Q4

REPORT INFORMATION
  Report Type: 
  Country: None (occurrence: None)
  Receive Date: 20101012
  Receipt Date: 20100928
  Transmission Date: 20110411
  Serious: Yes (Hospitalization)
  Sender: FDA-Public Use
  Company Number: NGX_00039_2010

PATIENT
  Age: 80 Year
  Sex: Female
  Weight: 70 kg

DRUGS (8)
  1. QUTENZA [Suspect]
     Indication: PAIN
     Dosage: (1 DF 1X TOPICAL)
     Route: 061
     Dates: start: 20100708
  2. PANTOZOL /01263202/ [Concomitant]
  3. AMITRIPTYLINE HCL [Concomitant]
  4. ASPIRIN [Concomitant]
  5. BISOPROLOL [Concomitant]
  6. RAMIPRIL [Concomitant]
  7. VALORON /00205402/ [Concomitant]
  8. VOLTAREN [Concomitant]

REACTIONS (6)
  - APPLICATION SITE PAIN [None]
  - BLOOD UREA INCREASED [None]
  - DEHYDRATION [None]
  - NAUSEA [None]
  - PLATELET COUNT DECREASED [None]
  - POST HERPETIC NEURALGIA [None]
